FAERS Safety Report 16415570 (Version 1)
Quarter: 2019Q2

REPORT INFORMATION
  Report Type: Other
  Country: US (occurrence: US)
  Receive Date: 20190611
  Receipt Date: 20190611
  Transmission Date: 20190711
  Serious: Yes (Hospitalization, Other)
  Sender: FDA-Public Use
  Company Number: US-ACORDA-ACO_159166_2019

PATIENT
  Age: 60 Year
  Sex: Female

DRUGS (3)
  1. AMPYRA [Suspect]
     Active Substance: DALFAMPRIDINE
     Indication: GAIT DISTURBANCE
     Dosage: UNK
     Route: 065
  2. WELLBUTRIN [Suspect]
     Active Substance: BUPROPION HYDROCHLORIDE
     Indication: DEPRESSION
     Dosage: UNK
     Route: 065
  3. TECFIDERA [Suspect]
     Active Substance: DIMETHYL FUMARATE
     Indication: MULTIPLE SCLEROSIS
     Dosage: 240 MILLIGRAM, BID (MAINTENANCE DOSE)
     Route: 048

REACTIONS (4)
  - Loss of consciousness [Recovered/Resolved]
  - Hypersomnia [Not Recovered/Not Resolved]
  - Seizure [Recovered/Resolved]
  - Chest X-ray abnormal [Unknown]

NARRATIVE: CASE EVENT DATE: 20190516
